FAERS Safety Report 9246423 (Version 1)
Quarter: 2013Q2

REPORT INFORMATION
  Report Type: Spontaneous
  Country: CA (occurrence: CA)
  Receive Date: 20130422
  Receipt Date: 20130422
  Transmission Date: 20140414
  Serious: Yes (Other)
  Sender: FDA-Public Use
  Company Number: CA-TEVA-399662USA

PATIENT
  Age: 71 Year
  Sex: 0
  Weight: 83.99 kg

DRUGS (14)
  1. NOVO-AMLODIPINE [Suspect]
     Route: 065
  2. ANDRIOL [Concomitant]
  3. DOMPERIDONE [Concomitant]
  4. FLOVENT [Concomitant]
  5. HUMALOG [Concomitant]
  6. LANTUS [Concomitant]
     Route: 058
  7. METFORMIN [Concomitant]
  8. NIACIN [Concomitant]
  9. NITROGLYCERIN [Concomitant]
  10. PANTOLOC [Concomitant]
  11. CANDESARTAN [Concomitant]
  12. SPIRIVA [Concomitant]
  13. SYMBICORT [Concomitant]
     Dosage: TURBUHALER
  14. VENTOLIN [Concomitant]

REACTIONS (4)
  - Loss of consciousness [Not Recovered/Not Resolved]
  - Headache [Not Recovered/Not Resolved]
  - Palpitations [Not Recovered/Not Resolved]
  - Dizziness [Not Recovered/Not Resolved]
